FAERS Safety Report 7650040-4 (Version None)
Quarter: 2011Q3

REPORT INFORMATION
  Report Type: 
  Country: None (occurrence: None)
  Receive Date: 20110802
  Receipt Date: 20110802
  Transmission Date: 20111222
  Serious: Yes (Hospitalization, Other)
  Sender: FDA-Public Use
  Company Number: None

PATIENT
  Age: 42 Year
  Sex: Female
  Weight: 51.255 kg

DRUGS (1)
  1. VYVANSE [Suspect]
     Indication: ATTENTION DEFICIT/HYPERACTIVITY DISORDER
     Dosage: 50MG
     Route: 048
     Dates: start: 20100619, end: 20110426

REACTIONS (7)
  - WEIGHT DECREASED [None]
  - PAROSMIA [None]
  - HALLUCINATIONS, MIXED [None]
  - ANXIETY [None]
  - DISTURBANCE IN ATTENTION [None]
  - THINKING ABNORMAL [None]
  - AGEUSIA [None]
